FAERS Safety Report 7364171-X (Version None)
Quarter: 2011Q1

REPORT INFORMATION
  Report Type: 
  Country: None (occurrence: None)
  Receive Date: 20110321
  Receipt Date: 20110314
  Transmission Date: 20110831
  Serious: No
  Sender: FDA-Public Use
  Company Number: CA-PFIZER INC-2011056576

PATIENT
  Sex: Female
  Weight: 68.027 kg

DRUGS (2)
  1. SYNTHROID [Concomitant]
     Indication: HYPOTHYROIDISM
     Dosage: UNK
  2. PRISTIQ [Suspect]
     Indication: DEPRESSION
     Dosage: 50 MG, 1X/DAY
     Route: 048
     Dates: start: 20101101

REACTIONS (3)
  - NAUSEA [None]
  - DIZZINESS [None]
  - DRUG WITHDRAWAL SYNDROME [None]
